FAERS Safety Report 23363948 (Version 1)
Quarter: 2024Q1

REPORT INFORMATION
  Report Type: Report from Study
  Country: US (occurrence: US)
  Receive Date: 20240104
  Receipt Date: 20240104
  Transmission Date: 20240409
  Serious: Yes (Other)
  Sender: FDA-Public Use
  Company Number: US-ABBVIE-5566376

PATIENT
  Age: 63 Year
  Sex: Male

DRUGS (8)
  1. SKYRIZI [Suspect]
     Active Substance: RISANKIZUMAB-RZAA
     Indication: Psoriasis
     Dosage: FORM STRENGTH: 150 MG/ML/LAST ADMIN DATE: 2023?FREQUENCY TEXT: WEEK 52
     Route: 058
     Dates: start: 20230907
  2. SKYRIZI [Suspect]
     Active Substance: RISANKIZUMAB-RZAA
     Dosage: FORM STRENGTH: 150 MG/ML/LAST ADMIN DATE: 2023?FREQUENCY TEXT: WEEK 28
     Route: 058
     Dates: start: 20230323
  3. SKYRIZI [Suspect]
     Active Substance: RISANKIZUMAB-RZAA
     Dosage: FORM STRENGTH: 150 MG/ML/LAST ADMIN DATE: 2022?FREQUENCY TEXT: WEEK 0
     Route: 058
     Dates: start: 20220908
  4. SKYRIZI [Suspect]
     Active Substance: RISANKIZUMAB-RZAA
     Dosage: FORM STRENGTH: 150 MG/ML/LAST ADMIN DATE: 2023?FREQUENCY TEXT: WEEK 40
     Route: 058
     Dates: start: 20230615
  5. SKYRIZI [Suspect]
     Active Substance: RISANKIZUMAB-RZAA
     Dosage: FORM STRENGTH: 150 MG/ML/LAST ADMIN DATE: 2023?FREQUENCY TEXT: WEEK 64
     Route: 058
     Dates: start: 20231129
  6. SKYRIZI [Suspect]
     Active Substance: RISANKIZUMAB-RZAA
     Dosage: FORM STRENGTH: 150 MG/ML/LAST ADMIN DATE: 2022?FREQUENCY TEXT: WEEK 4
     Route: 058
     Dates: start: 20221006
  7. SKYRIZI [Suspect]
     Active Substance: RISANKIZUMAB-RZAA
     Dosage: FORM STRENGTH: 150 MG/ML/LAST ADMIN DATE: 2022?FREQUENCY TEXT: WEEK 16
     Route: 058
     Dates: start: 20221229
  8. SKYRIZI [Suspect]
     Active Substance: RISANKIZUMAB-RZAA
     Dosage: FORM STRENGTH: 150 MG/ML? FREQUENCY TEXT: WEEK 76?THEN EVERY 12 WEEKS THEREAFTER
     Route: 058

REACTIONS (3)
  - Cardiac operation [Unknown]
  - Dyspepsia [Unknown]
  - Psoriasis [Unknown]

NARRATIVE: CASE EVENT DATE: 20230901
